FAERS Safety Report 15933892 (Version 3)
Quarter: 2019Q2

REPORT INFORMATION
  Report Type: Report from Study
  Country: US (occurrence: US)
  Receive Date: 20190207
  Receipt Date: 20190419
  Transmission Date: 20190711
  Serious: Yes (Hospitalization, Other)
  Sender: FDA-Public Use
  Company Number: US-AMGEN-USASL2019017243

PATIENT
  Age: 74 Year
  Sex: Male

DRUGS (4)
  1. ASPIRINE [Concomitant]
     Active Substance: ASPIRIN
     Dosage: UNK
  2. REPATHA [Suspect]
     Active Substance: EVOLOCUMAB
     Indication: ARTERIOSCLEROSIS
     Dosage: UNK, Q2WK
     Route: 065
     Dates: start: 201808
  3. REPATHA [Suspect]
     Active Substance: EVOLOCUMAB
     Dosage: UNK
     Route: 065
  4. PLAVIX [Concomitant]
     Active Substance: CLOPIDOGREL BISULFATE
     Dosage: UNK

REACTIONS (7)
  - Pneumonia [Unknown]
  - White blood cell count increased [Unknown]
  - Endoscopy [Unknown]
  - Pulmonary oedema [Unknown]
  - Malaise [Unknown]
  - Cerebrovascular accident [Unknown]
  - Cellulitis [Unknown]

NARRATIVE: CASE EVENT DATE: 201810
